FAERS Safety Report 7405667-1 (Version None)
Quarter: 2011Q2

REPORT INFORMATION
  Report Type: 
  Country: None (occurrence: None)
  Receive Date: 20110411
  Receipt Date: 20110330
  Transmission Date: 20111010
  Serious: Yes (Death, Other)
  Sender: FDA-Public Use
  Company Number: JP-ROCHE-723216

PATIENT
  Sex: Female
  Weight: 55 kg

DRUGS (17)
  1. AVASTIN [Suspect]
     Route: 041
     Dates: start: 20090929, end: 20100110
  2. ELPLAT [Suspect]
     Indication: COLON CANCER METASTATIC
     Dosage: NOTE: DOSAGE IS UNCERTAIN
     Route: 041
     Dates: start: 20081001, end: 20090830
  3. LEVOFOLINATE [Suspect]
     Indication: COLON CANCER METASTATIC
     Dosage: DOSAGE IS UNCERTAIN
     Route: 041
  4. LEVOFOLINATE [Suspect]
     Dosage: NOTE: DOSAGE IS UNCERTAIN
     Route: 041
     Dates: start: 20081001, end: 20090830
  5. FLUOROURACIL [Suspect]
     Dosage: NOTE: DOSAGE IS UNCERTAIN; ROUTE: INTRAVENOUS BOLUS
     Route: 050
     Dates: start: 20081001, end: 20090830
  6. FLUOROURACIL [Suspect]
     Dosage: DOSAGE IS UNCERTAIN; ROUTE: INTRAVENOUS DRIP
     Route: 050
     Dates: start: 20081001, end: 20090801
  7. FLUOROURACIL [Suspect]
     Dosage: ROUTE: INTRAVENOUS BOLUS
     Route: 050
     Dates: start: 20100225, end: 20100618
  8. AVASTIN [Suspect]
     Route: 041
     Dates: start: 20100225, end: 20100618
  9. ELPLAT [Suspect]
     Dosage: DOSAGE IS UNCERTAIN
     Route: 041
     Dates: start: 20100225, end: 20100618
  10. LEVOFOLINATE [Suspect]
     Route: 041
     Dates: start: 20090929, end: 20100110
  11. IRINOTECAN HYDROCHLORIDE [Concomitant]
     Dosage: NOTE: DOSAGE IS UNCERTAIN
     Route: 041
     Dates: start: 20090929, end: 20100110
  12. FLUOROURACIL [Suspect]
     Indication: COLON CANCER METASTATIC
     Dosage: DOSAGE IS UNCERTAIN
     Route: 050
  13. FLUOROURACIL [Suspect]
     Dosage: ROUTE: INTRAVENOUS BOLUS
     Route: 050
     Dates: start: 20090929, end: 20100110
  14. AVASTIN [Suspect]
     Indication: COLON CANCER METASTATIC
     Dosage: NOTE: DOSAGE IS UNCERTAIN
     Route: 041
     Dates: start: 20081001, end: 20090830
  15. LEVOFOLINATE [Suspect]
     Route: 041
     Dates: start: 20100225, end: 20100618
  16. FLUOROURACIL [Suspect]
     Dosage: ROUTE: INTRAVENOUS DRIP
     Route: 050
     Dates: start: 20090929, end: 20100101
  17. FLUOROURACIL [Suspect]
     Dosage: ROUTE: INTRAVENOUS DRIP
     Route: 050
     Dates: start: 20100225, end: 20100601

REACTIONS (7)
  - RESPIRATORY FAILURE [None]
  - PERITONITIS [None]
  - WOUND DEHISCENCE [None]
  - MALIGNANT PLEURAL EFFUSION [None]
  - GASTROINTESTINAL PERFORATION [None]
  - ILEUS [None]
  - SHORT-BOWEL SYNDROME [None]
